FAERS Safety Report 9982565 (Version 1)
Quarter: 2014Q1

REPORT INFORMATION
  Report Type: Report from Study
  Country: US (occurrence: US)
  Receive Date: 20140307
  Receipt Date: 20140307
  Transmission Date: 20141002
  Serious: No
  Sender: FDA-Public Use
  Company Number: US-ABBVIE-13P-163-1175964-00

PATIENT
  Sex: Female
  Weight: 44.04 kg

DRUGS (6)
  1. HUMIRA [Suspect]
     Indication: PSORIASIS
     Dates: start: 201112, end: 201304
  2. CLOBETASOL [Concomitant]
     Indication: PSORIASIS
  3. VITAMIN D [Concomitant]
     Indication: PSORIASIS
  4. DOVONEX [Concomitant]
     Indication: PSORIASIS
  5. CONCERTA [Concomitant]
     Indication: ATTENTION DEFICIT/HYPERACTIVITY DISORDER
  6. MULTIVITAMINS [Concomitant]
     Indication: VITAMIN SUPPLEMENTATION

REACTIONS (4)
  - Injection site bruising [Not Recovered/Not Resolved]
  - Fatigue [Unknown]
  - Pallor [Unknown]
  - Increased tendency to bruise [Unknown]
